FAERS Safety Report 7465067-5 (Version None)
Quarter: 2011Q2

REPORT INFORMATION
  Report Type: 
  Country: None (occurrence: None)
  Receive Date: 20110509
  Receipt Date: 20100902
  Transmission Date: 20111010
  Serious: No
  Sender: FDA-Public Use
  Company Number: US-SANOFI-AVENTIS-2010SA055235

PATIENT
  Age: 54 Year
  Sex: Male
  Weight: 112 kg

DRUGS (2)
  1. OPTICLICK [Suspect]
     Dates: start: 20050101
  2. APIDRA [Suspect]
     Dosage: SLIDING SCALE DOSE 5 TIME DAILY 20-40 UNITS
     Route: 058
     Dates: start: 20020101

REACTIONS (2)
  - GLYCOSYLATED HAEMOGLOBIN INCREASED [None]
  - WEIGHT DECREASED [None]
